FAERS Safety Report 4320322-2 (Version None)
Quarter: 2004Q1

REPORT INFORMATION
  Report Type: 
  Country: None (occurrence: None)
  Receive Date: 20040317
  Receipt Date: 20040305
  Transmission Date: 20041129
  Serious: Yes (Hospitalization)
  Sender: FDA-Public Use
  Company Number: PERI00204000636

PATIENT
  Age: 57 Year
  Sex: Male

DRUGS (6)
  1. COVERSYL (PERINDOPRIL) [Suspect]
     Indication: ILL-DEFINED DISORDER
     Dosage: 2 MG QD PO
     Route: 048
  2. MS CONTIN [Suspect]
     Indication: ILL-DEFINED DISORDER
     Dosage: 40 MG DAILY PO
     Route: 048
  3. OXAZEPAM [Suspect]
     Indication: ILL-DEFINED DISORDER
     Dosage: 22.5 MG DAILY PO
     Route: 048
     Dates: end: 20030818
  4. DIAZEPAM [Suspect]
     Indication: PSYCHIATRIC SYMPTOM
     Dosage: DAILY PO
     Route: 048
     Dates: start: 20030816, end: 20030818
  5. PHENYTOIN SODIUM [Suspect]
     Indication: ILL-DEFINED DISORDER
     Dosage: 300 MG QD PO
     Route: 048
     Dates: end: 20030818
  6. MORPHINE SULFATE [Suspect]
     Indication: ILL-DEFINED DISORDER
     Dosage: 10 MG DAILY PO
     Route: 048
     Dates: end: 20030818

REACTIONS (4)
  - APNOEA [None]
  - NYSTAGMUS [None]
  - OVERDOSE [None]
  - SOMNOLENCE [None]
